FAERS Safety Report 21619989 (Version 3)
Quarter: 2022Q4

REPORT INFORMATION
  Report Type: Spontaneous
  Country: DE (occurrence: DE)
  Receive Date: 20221121
  Receipt Date: 20221128
  Transmission Date: 20230113
  Serious: Yes (Other)
  Sender: FDA-Public Use
  Company Number: DE-BoehringerIngelheim-2022-BI-202620

PATIENT
  Age: 63 Year
  Sex: Male
  Weight: 83 kg

DRUGS (2)
  1. NINTEDANIB [Suspect]
     Active Substance: NINTEDANIB
     Indication: Bronchial carcinoma
     Dates: start: 20171204, end: 202207
  2. NINTEDANIB [Suspect]
     Active Substance: NINTEDANIB
     Dates: start: 202207

REACTIONS (5)
  - Muscle spasms [Unknown]
  - Tendonitis [Unknown]
  - Joint range of motion decreased [Unknown]
  - Myalgia [Unknown]
  - Pain in extremity [Unknown]

NARRATIVE: CASE EVENT DATE: 20210101
